FAERS Safety Report 8098313 (Version 3)
Quarter: 2012Q4

REPORT INFORMATION
  Report Type: 
  Country: US (occurrence: US)
  Receive Date: 20110819
  Receipt Date: 20121206
  Transmission Date: 20130627
  Serious: Yes (Hospitalization)
  Sender: FDA-Public Use
  Company Number: US-GLAXOSMITHKLINE-A0925406A

PATIENT
  Age: 45 Year
  Sex: Male
  Weight: 122.5 kg

DRUGS (1)
  1. ROSIGLITAZONE MALEATE [Suspect]
     Indication: DIABETES MELLITUS
     Route: 048

REACTIONS (7)
  - Cerebrovascular accident [Not Recovered/Not Resolved]
  - Transient ischaemic attack [Unknown]
  - Renal failure [Unknown]
  - Cardiac disorder [Unknown]
  - Cardiac operation [Unknown]
  - Acute myocardial infarction [Unknown]
  - Cardiac failure congestive [Unknown]
